FAERS Safety Report 18584932 (Version 3)
Quarter: 2022Q3

REPORT INFORMATION
  Report Type: Other
  Country: DO (occurrence: None)
  Receive Date: 20201207
  Receipt Date: 20220701
  Transmission Date: 20221026
  Serious: No
  Sender: FDA-Public Use
  Company Number: DO-ROCHE-2697039

PATIENT
  Age: 29 Year
  Sex: Male
  Weight: 88 kg

DRUGS (13)
  1. OCRELIZUMAB [Suspect]
     Active Substance: OCRELIZUMAB
     Indication: Relapsing-remitting multiple sclerosis
     Dosage: 300MG/250ML  ON DAY 1 AND DAY 14 THEN 600 MG EVERY 6 MONTHS
     Route: 042
     Dates: start: 20200116, end: 20200116
  2. OCRELIZUMAB [Suspect]
     Active Substance: OCRELIZUMAB
     Dosage: 300MG/250ML (DAY 14)
     Route: 042
     Dates: start: 20200130, end: 20200130
  3. OCRELIZUMAB [Suspect]
     Active Substance: OCRELIZUMAB
     Dosage: 600MG/500ML
     Route: 042
     Dates: start: 20200909, end: 20200909
  4. LOSARTAN [Concomitant]
     Active Substance: LOSARTAN
     Indication: Hypertension
     Route: 048
     Dates: start: 201906
  5. SOLU-MEDROL [Concomitant]
     Active Substance: METHYLPREDNISOLONE SODIUM SUCCINATE
     Indication: Premedication
     Route: 042
     Dates: start: 20200116, end: 20200116
  6. SOLU-MEDROL [Concomitant]
     Active Substance: METHYLPREDNISOLONE SODIUM SUCCINATE
     Route: 042
     Dates: start: 20200130, end: 20200130
  7. SOLU-MEDROL [Concomitant]
     Active Substance: METHYLPREDNISOLONE SODIUM SUCCINATE
     Route: 042
     Dates: start: 20200909, end: 20200909
  8. FENDRAMIN [Concomitant]
     Indication: Premedication
     Route: 042
     Dates: start: 20200130, end: 20200130
  9. FENDRAMIN [Concomitant]
     Route: 042
     Dates: start: 20200909, end: 20200909
  10. ACETAMINOPHEN [Concomitant]
     Active Substance: ACETAMINOPHEN
     Indication: Premedication
     Route: 048
     Dates: start: 20200116, end: 20200116
  11. ACETAMINOPHEN [Concomitant]
     Active Substance: ACETAMINOPHEN
     Indication: Premedication
     Route: 048
     Dates: start: 20200130, end: 20200130
  12. ACETAMINOPHEN [Concomitant]
     Active Substance: ACETAMINOPHEN
     Route: 048
     Dates: start: 20200909, end: 20200909
  13. DIPHENHYDRAMINE [Concomitant]
     Active Substance: DIPHENHYDRAMINE
     Indication: Premedication
     Route: 042
     Dates: start: 20200116, end: 20200116

REACTIONS (1)
  - SARS-CoV-2 antibody test positive [Recovered/Resolved]

NARRATIVE: CASE EVENT DATE: 20200401
